FAERS Safety Report 17238015 (Version 1)
Quarter: 2020Q1

REPORT INFORMATION
  Report Type: Spontaneous
  Country: US (occurrence: US)
  Receive Date: 20200106
  Receipt Date: 20200106
  Transmission Date: 20200409
  Serious: Yes (Life-Threatening)
  Sender: FDA-Public Use
  Company Number: US-PACIRA-201900091

PATIENT
  Age: 65 Year
  Sex: Male
  Weight: 78 kg

DRUGS (2)
  1. EXPAREL [Suspect]
     Active Substance: BUPIVACAINE
     Indication: NERVE BLOCK
     Dosage: SINGLE DOSE OF 106 MG FOR APPROX. 20 MINS. AFTER LIDOCAINE
     Route: 042
     Dates: start: 20171012
  2. LIDOCAINE. [Suspect]
     Active Substance: LIDOCAINE
     Indication: EXTRASYSTOLES
     Dosage: SINGLE DOSE OF 40 MG
     Route: 042
     Dates: start: 20171012, end: 20171012

REACTIONS (2)
  - Anaesthetic complication [Recovered/Resolved]
  - Tachycardia [Recovered/Resolved]

NARRATIVE: CASE EVENT DATE: 20171012
